FAERS Safety Report 22042652 (Version 1)
Quarter: 2023Q1

REPORT INFORMATION
  Report Type: Spontaneous
  Country: US (occurrence: US)
  Receive Date: 20230228
  Receipt Date: 20230228
  Transmission Date: 20230417
  Serious: No
  Sender: FDA-Public Use
  Company Number: US-PADAGIS-2023PAD00131

PATIENT

DRUGS (1)
  1. MOMETASONE FUROATE [Suspect]
     Active Substance: MOMETASONE FUROATE
     Indication: Pruritus
     Dosage: THREE DROPS THREE TIMES A WEEK ON THE SCALP
     Route: 065
     Dates: start: 202301

REACTIONS (1)
  - Hair colour changes [Unknown]
